FAERS Safety Report 25962719 (Version 1)
Quarter: 2025Q4

REPORT INFORMATION
  Report Type: Spontaneous
  Country: CN (occurrence: CN)
  Receive Date: 20251027
  Receipt Date: 20251027
  Transmission Date: 20260118
  Serious: Yes (Disabling, Other)
  Sender: MERCK SHARP & DOHME LLC
  Company Number: CN-009507513-2341084

PATIENT
  Age: 69 Year
  Sex: Male

DRUGS (7)
  1. CILASTATIN SODIUM\IMIPENEM [Suspect]
     Active Substance: CILASTATIN SODIUM\IMIPENEM
     Indication: Sepsis
     Dosage: TIME INTERVAL: 0.33333333 DAYS
     Route: 041
     Dates: start: 20251008, end: 20251010
  2. FLUCONAZOLE [Suspect]
     Active Substance: FLUCONAZOLE
     Indication: Fungal infection
     Route: 048
     Dates: start: 20251009, end: 20251012
  3. HERBALS [Concomitant]
     Active Substance: HERBALS
     Route: 041
     Dates: start: 20251006
  4. METHYLPREDNISOLONE SODIUM SUCCINATE [Concomitant]
     Active Substance: METHYLPREDNISOLONE SODIUM SUCCINATE
     Route: 041
     Dates: start: 20251006
  5. Levofloxacin sodium chloride [Concomitant]
     Route: 041
     Dates: start: 20251008
  6. CEFOPERAZONE\SULBACTAM [Concomitant]
     Active Substance: CEFOPERAZONE\SULBACTAM
     Indication: Anti-infective therapy
     Route: 041
     Dates: start: 20251006, end: 20251008
  7. CEFOPERAZONE\SULBACTAM [Concomitant]
     Active Substance: CEFOPERAZONE\SULBACTAM
     Indication: Anti-infective therapy
     Dosage: TIME INTERVAL: 0.33333333 DAYS
     Route: 041
     Dates: start: 20251008

REACTIONS (5)
  - Renal failure [Not Recovered/Not Resolved]
  - Sepsis [Unknown]
  - Plasma cell myeloma [Unknown]
  - Candida infection [Unknown]
  - Septic shock [Unknown]

NARRATIVE: CASE EVENT DATE: 20251001
